FAERS Safety Report 6016953-4 (Version None)
Quarter: 2008Q4

REPORT INFORMATION
  Report Type: 
  Country: None (occurrence: None)
  Receive Date: 20081219
  Receipt Date: 20081209
  Transmission Date: 20090506
  Serious: Yes (Hospitalization)
  Sender: FDA-Public Use
  Company Number: 2008SP025087

PATIENT
  Age: 53 Year
  Sex: Male

DRUGS (2)
  1. PEG-INTRON [Suspect]
     Indication: HEPATITIS C
     Dosage: ;SC
     Route: 058
     Dates: start: 20081013
  2. RIBAPAK [Suspect]
     Indication: HEPATITIS C
     Dosage: ;PO
     Route: 048
     Dates: start: 20081013

REACTIONS (12)
  - AMMONIA INCREASED [None]
  - BLOOD COUNT ABNORMAL [None]
  - CONFUSIONAL STATE [None]
  - DRY SKIN [None]
  - FATIGUE [None]
  - HAEMATOCHEZIA [None]
  - HAEMORRHAGE [None]
  - INFECTION [None]
  - LOSS OF CONSCIOUSNESS [None]
  - PRODUCTIVE COUGH [None]
  - PRURITUS [None]
  - RASH GENERALISED [None]
